FAERS Safety Report 8333845-6 (Version None)
Quarter: 2012Q2

REPORT INFORMATION
  Report Type: 
  Country: None (occurrence: None)
  Receive Date: 20120503
  Receipt Date: 20120430
  Transmission Date: 20120825
  Serious: Yes (Hospitalization)
  Sender: FDA-Public Use
  Company Number: US-PFIZER INC-2012093143

PATIENT
  Sex: Male
  Weight: 79.4 kg

DRUGS (13)
  1. OXYCODONE [Concomitant]
     Indication: PAIN
     Dosage: UNK
     Dates: start: 20111103
  2. BENAZEPRIL [Concomitant]
     Indication: HYPERTENSION
     Dosage: UNK
     Dates: start: 20120127
  3. LOPID [Concomitant]
     Indication: HYPERTRIGLYCERIDAEMIA
     Dosage: UNK
     Dates: start: 20120207
  4. AXITINIB [Suspect]
     Indication: COLON CANCER
     Dosage: 3 MG, TWICE DAILY FOR 14 DAYS
     Route: 048
     Dates: start: 20120124, end: 20120412
  5. MAGIC MOUTHWASH [Concomitant]
     Indication: MUCOSAL INFLAMMATION
  6. MORPHINE [Concomitant]
     Indication: PAIN
     Dosage: UNK
     Dates: start: 20110929
  7. DOCUSATE [Concomitant]
     Indication: CONSTIPATION
     Dosage: UNK
     Dates: start: 20100614
  8. CYCLOBENZAPRINE [Concomitant]
     Indication: MUSCLE SPASMS
     Dosage: UNK
     Dates: start: 20111218
  9. TEMSIROLIMUS [Suspect]
     Indication: COLON CANCER
     Dosage: 25 MG, WEEKLY
     Route: 042
     Dates: start: 20120124, end: 20120410
  10. PROCHLORPERAZINE [Concomitant]
     Indication: NAUSEA
     Dosage: UNK
     Dates: start: 20110520
  11. TAMSULOSIN [Concomitant]
     Indication: BENIGN PROSTATIC HYPERPLASIA
     Dosage: UNK
     Dates: start: 20100607
  12. AMLODIPINE [Concomitant]
     Indication: HYPERTENSION
     Dosage: UNK
     Dates: start: 20120127
  13. ONDANSETRON [Concomitant]
     Indication: NAUSEA
     Dosage: UNK
     Dates: start: 20120131

REACTIONS (1)
  - PNEUMONIA [None]
